FAERS Safety Report 4889363-0 (Version None)
Quarter: 2006Q1

REPORT INFORMATION
  Report Type: 
  Country: None (occurrence: None)
  Receive Date: 20060120
  Receipt Date: 20060120
  Transmission Date: 20060701
  Serious: Yes (Hospitalization)
  Sender: FDA-Public Use
  Company Number: None

PATIENT
  Age: 69 Year
  Sex: Female
  Weight: 52 kg

DRUGS (9)
  1. ETANERCEPT (AMGEN) [Suspect]
     Indication: RENAL FAILURE CHRONIC
     Dosage: 25 MG SC BIW
     Route: 058
     Dates: start: 20050525, end: 20060116
  2. PROTONIX [Concomitant]
  3. LACTULOSE [Concomitant]
  4. TERAZOSIN [Concomitant]
  5. LANTUS [Concomitant]
  6. PHENERGAN [Concomitant]
  7. LIPITOR [Concomitant]
  8. GLIPIZIDE [Concomitant]
  9. HUMULIN [Concomitant]

REACTIONS (11)
  - ABDOMINAL PAIN UPPER [None]
  - ANOREXIA [None]
  - BLOOD AMYLASE INCREASED [None]
  - BLOOD PRESSURE INADEQUATELY CONTROLLED [None]
  - CONSTIPATION [None]
  - EPISTAXIS [None]
  - GASTROENTERITIS [None]
  - LIPASE INCREASED [None]
  - NAUSEA [None]
  - PEPTIC ULCER [None]
  - VOMITING [None]
